FAERS Safety Report 8217771-9 (Version None)
Quarter: 2012Q1

REPORT INFORMATION
  Report Type: 
  Country: None (occurrence: None)
  Receive Date: 20120319
  Receipt Date: 20120302
  Transmission Date: 20120608
  Serious: Yes (Hospitalization)
  Sender: FDA-Public Use
  Company Number: FR-JNJFOC-20120305547

PATIENT
  Sex: Male

DRUGS (7)
  1. VANCOMYCIN [Suspect]
     Indication: INFECTION
     Route: 042
     Dates: start: 20111208, end: 20120107
  2. TRAMADOL HCL [Suspect]
     Indication: ANALGESIC INTERVENTION SUPPORTIVE THERAPY
     Route: 065
     Dates: end: 20120107
  3. AMIKACIN [Suspect]
     Indication: INFECTION
     Route: 042
     Dates: start: 20111216, end: 20111228
  4. VITAMIN D [Concomitant]
     Indication: VITAMIN D DEFICIENCY
     Route: 048
     Dates: end: 20120107
  5. IMIPENEM AND CILASTATIN SODIUM [Suspect]
     Indication: INFECTION
     Route: 042
     Dates: start: 20111208, end: 20120106
  6. IMOVANE [Concomitant]
     Indication: INSOMNIA
     Route: 048
     Dates: end: 20120107
  7. FERROUS SULFATE TAB [Concomitant]
     Indication: IRON DEFICIENCY ANAEMIA
     Route: 048
     Dates: end: 20120107

REACTIONS (1)
  - DRUG RASH WITH EOSINOPHILIA AND SYSTEMIC SYMPTOMS [None]
